FAERS Safety Report 19921818 (Version 3)
Quarter: 2022Q1

REPORT INFORMATION
  Report Type: Spontaneous
  Country: DK (occurrence: DK)
  Receive Date: 20211005
  Receipt Date: 20220106
  Transmission Date: 20220423
  Serious: Yes (Hospitalization, Other)
  Sender: FDA-Public Use
  Company Number: DK-GEDEON RICHTER PLC.-2021_GR_007260

PATIENT
  Sex: Female

DRUGS (1)
  1. LEVONORGESTREL [Suspect]
     Active Substance: LEVONORGESTREL
     Indication: Product used for unknown indication
     Dosage: 52 MG, AT AN INITIAL RELEASE RATE OF 20 MICROGRAMS PER 24 HOURS
     Route: 015
     Dates: start: 20210909

REACTIONS (5)
  - Illness [Unknown]
  - Infection susceptibility increased [Unknown]
  - Device difficult to use [Unknown]
  - Product contamination [Unknown]
  - Product physical issue [Unknown]
